FAERS Safety Report 5808647-2 (Version None)
Quarter: 2008Q3

REPORT INFORMATION
  Report Type: 
  Country: None (occurrence: None)
  Receive Date: 20080714
  Receipt Date: 20080710
  Transmission Date: 20090109
  Serious: Yes (Hospitalization, Disabling)
  Sender: FDA-Public Use
  Company Number: JP-BRISTOL-MYERS SQUIBB COMPANY-13881149

PATIENT
  Age: 70 Year
  Sex: Male
  Weight: 64 kg

DRUGS (10)
  1. BRIPLATIN [Suspect]
     Indication: PLEURAL MESOTHELIOMA MALIGNANT
     Dosage: II CYCLE: 16-AUG-2007.THIRD SCHEDULED ON 09-SEP-2007;THERAPY DURATION:43DAY
     Route: 042
     Dates: start: 20070726, end: 20070726
  2. ALIMTA [Suspect]
     Indication: PLEURAL MESOTHELIOMA MALIGNANT
     Dosage: SECOND CYCLE RECEIVED ON 16-AUG-2007.THIRD SCHEDULED ON 09-SEP-2007
     Route: 041
     Dates: start: 20070726, end: 20070906
  3. PANVITAN [Concomitant]
     Route: 048
     Dates: start: 20070717, end: 20071025
  4. DECADRON [Concomitant]
     Dosage: 25-JUL-2007 TO 27-JUL-2007; 15-AUG-2007 TO 17-AUG-2007; 05-SEP-2007 TO 07-SEP-2007.
     Route: 048
     Dates: start: 20070725, end: 20070907
  5. FOLIC ACID [Concomitant]
  6. CYANOCOBALAMIN [Concomitant]
     Route: 030
     Dates: start: 20070717, end: 20071120
  7. KYTRIL [Concomitant]
     Route: 041
     Dates: start: 20070726, end: 20070906
  8. DAONIL [Concomitant]
     Route: 048
     Dates: start: 20070705
  9. URSO 250 [Concomitant]
     Route: 048
     Dates: start: 20070725
  10. VITAMIN B-12 [Concomitant]

REACTIONS (8)
  - ANAEMIA [None]
  - ANOREXIA [None]
  - BLOOD ALBUMIN DECREASED [None]
  - BLOOD BILIRUBIN INCREASED [None]
  - BLOOD UREA INCREASED [None]
  - GASTRIC ULCER HAEMORRHAGE [None]
  - RASH [None]
  - WHITE BLOOD CELL COUNT DECREASED [None]
